FAERS Safety Report 14381568 (Version 1)
Quarter: 2018Q1

REPORT INFORMATION
  Report Type: Other
  Country: US (occurrence: US)
  Receive Date: 20180112
  Receipt Date: 20180112
  Transmission Date: 20180509
  Serious: Yes (Death)
  Sender: FDA-Public Use
  Company Number: US-GENUS_LIFESCIENCES-USA-POI0580201800044

PATIENT
  Age: 39 Year
  Sex: Female

DRUGS (5)
  1. OXYCODONE HCL CAPSULES [Suspect]
     Active Substance: OXYCODONE HYDROCHLORIDE
     Dates: end: 2016
  2. METOPROLOL. [Suspect]
     Active Substance: METOPROLOL
     Dates: end: 2016
  3. AMLODIPINE [Suspect]
     Active Substance: AMLODIPINE BESYLATE
     Dates: end: 2016
  4. FENTANYL. [Suspect]
     Active Substance: FENTANYL
     Dates: end: 2016
  5. DIAZEPAM. [Suspect]
     Active Substance: DIAZEPAM
     Dates: end: 2016

REACTIONS (1)
  - Completed suicide [Fatal]

NARRATIVE: CASE EVENT DATE: 2016
